FAERS Safety Report 8795757 (Version 2)
Quarter: 2012Q4

REPORT INFORMATION
  Report Type: 
  Country: PH (occurrence: PH)
  Receive Date: 20120920
  Receipt Date: 20121018
  Transmission Date: 20130627
  Serious: Yes (Death)
  Sender: FDA-Public Use
  Company Number: PH-B.I. PHARMACEUTICALS,INC./RIDGEFIELD-2012-CS-01336RP

PATIENT
  Age: 70 Year
  Sex: Male

DRUGS (2)
  1. PRADAXA [Suspect]
     Indication: THROMBOSIS PROPHYLAXIS
     Dosage: 220 mg
     Route: 048
     Dates: start: 201208
  2. CAPTOPRIL [Concomitant]
     Indication: HYPERTENSION

REACTIONS (2)
  - Myocardial infarction [Fatal]
  - Pulmonary embolism [Fatal]
